FAERS Safety Report 8049125-2 (Version None)
Quarter: 2012Q1

REPORT INFORMATION
  Report Type: 
  Country: None (occurrence: None)
  Receive Date: 20120117
  Receipt Date: 20120113
  Transmission Date: 20120608
  Serious: Yes (Death, Other)
  Sender: FDA-Public Use
  Company Number: PH-JNJFOC-20120104595

PATIENT
  Age: 86 Year
  Sex: Female

DRUGS (3)
  1. DORIBAX [Suspect]
     Route: 042
  2. DORIBAX [Suspect]
     Route: 042
  3. DORIBAX [Suspect]
     Indication: PNEUMONIA
     Route: 042

REACTIONS (2)
  - INCORRECT DOSE ADMINISTERED [None]
  - ACUTE CORONARY SYNDROME [None]
